FAERS Safety Report 11653078 (Version 3)
Quarter: 2015Q4

REPORT INFORMATION
  Report Type: Spontaneous
  Country: DE (occurrence: DE)
  Receive Date: 20151022
  Receipt Date: 20151027
  Transmission Date: 20160304
  Serious: Yes (Other)
  Sender: FDA-Public Use
  Company Number: PHHY2015DE135365

PATIENT
  Age: 65 Year
  Sex: Male

DRUGS (2)
  1. REVOLADE [Suspect]
     Active Substance: ELTROMBOPAG
     Indication: IMMUNE THROMBOCYTOPENIC PURPURA
     Dosage: 50 MG, UNK
     Route: 065
  2. PREDNISOLONE. [Concomitant]
     Active Substance: PREDNISOLONE
     Indication: PRODUCT USED FOR UNKNOWN INDICATION
     Dosage: 40 MG, QD
     Route: 065

REACTIONS (6)
  - Headache [Recovered/Resolved]
  - Sensitisation [Recovered/Resolved]
  - Agitation [Recovered/Resolved]
  - Psychotic disorder [Recovered/Resolved]
  - Hallucination [Recovered/Resolved]
  - Fear [Recovered/Resolved]

NARRATIVE: CASE EVENT DATE: 201509
